FAERS Safety Report 4536334-X (Version None)
Quarter: 2004Q4

REPORT INFORMATION
  Report Type: 
  Country: None (occurrence: None)
  Receive Date: 20041223
  Receipt Date: 20040714
  Transmission Date: 20050328
  Serious: No
  Sender: FDA-Public Use
  Company Number: US-GLAXOSMITHKLINE-A0518219A

PATIENT
  Sex: Male

DRUGS (2)
  1. FLONASE [Suspect]
     Indication: ILL-DEFINED DISORDER
     Dosage: 1SPR PER DAY
     Route: 045
  2. BLOOD PRESSURE MEDICATION [Concomitant]
     Route: 065

REACTIONS (2)
  - EPISTAXIS [None]
  - THROAT IRRITATION [None]
